FAERS Safety Report 25590550 (Version 1)
Quarter: 2025Q3

REPORT INFORMATION
  Report Type: Spontaneous
  Country: US (occurrence: None)
  Receive Date: 20250721
  Receipt Date: 20250721
  Transmission Date: 20251021
  Serious: No
  Sender: FDA-CTU
  Company Number: None

PATIENT
  Age: 48 Year
  Sex: Female
  Weight: 81 kg

DRUGS (1)
  1. ICY HOT [Suspect]
     Active Substance: LIDOCAINE\MENTHOL
     Route: 061
     Dates: start: 20250721, end: 20250721

REACTIONS (3)
  - Application site erythema [None]
  - Burning sensation [None]
  - Burns first degree [None]

NARRATIVE: CASE EVENT DATE: 20250721
